FAERS Safety Report 24549327 (Version 1)
Quarter: 2024Q4

REPORT INFORMATION
  Report Type: Spontaneous
  Country: CN (occurrence: CN)
  Receive Date: 20241025
  Receipt Date: 20241025
  Transmission Date: 20250114
  Serious: Yes (Other)
  Sender: EAGLE
  Company Number: PA2024CN000317

PATIENT
  Age: 48 Year
  Sex: Female
  Weight: 55 kg

DRUGS (6)
  1. REMIMAZOLAM [Suspect]
     Active Substance: REMIMAZOLAM
     Indication: Induction of anaesthesia
     Dosage: 25 MILLIGRAM, UNK
     Route: 042
     Dates: start: 20240930, end: 20240930
  2. SUFENTANIL CITRATE [Suspect]
     Active Substance: SUFENTANIL CITRATE
     Indication: Induction of anaesthesia
     Dosage: 10 MICROGRAM, UNK
     Route: 042
     Dates: start: 20240930, end: 20240930
  3. PROPOFOL [Suspect]
     Active Substance: PROPOFOL
     Indication: Induction of anaesthesia
     Dosage: 0.2 GRAM, UNK
     Route: 042
     Dates: start: 20240930, end: 20240930
  4. BUTORPHANOL TARTRATE [Suspect]
     Active Substance: BUTORPHANOL TARTRATE
     Indication: Induction of anaesthesia
     Dosage: 2 MILLIGRAM, UNK
     Route: 042
     Dates: start: 20240930, end: 20240930
  5. DEZOCINE [Suspect]
     Active Substance: DEZOCINE
     Indication: Induction of anaesthesia
     Dosage: 5 MILLIGRAM, UNK
     Route: 042
     Dates: start: 20240930, end: 20240930
  6. PHLOROGLUCINOL [Suspect]
     Active Substance: PHLOROGLUCINOL
     Indication: Symptomatic treatment
     Dosage: 40 MILLIGRAM, UNK
     Route: 030
     Dates: start: 20240930, end: 20240930

REACTIONS (2)
  - Muscular weakness [Recovered/Resolved]
  - Chills [Recovered/Resolved]

NARRATIVE: CASE EVENT DATE: 20240930
